FAERS Safety Report 7518626-5 (Version None)
Quarter: 2011Q2

REPORT INFORMATION
  Report Type: 
  Country: None (occurrence: None)
  Receive Date: 20110601
  Receipt Date: 20110601
  Transmission Date: 20111010
  Serious: Yes (Other)
  Sender: FDA-Public Use
  Company Number: None

PATIENT
  Age: 22 Year
  Sex: Male
  Weight: 68.9467 kg

DRUGS (2)
  1. COLCRYS [Suspect]
     Indication: FAMILIAL MEDITERRANEAN FEVER
     Dosage: 1 PO
     Route: 048
     Dates: start: 20110520, end: 20110522
  2. COLCRYS [Suspect]
     Indication: FAMILIAL MEDITERRANEAN FEVER
     Dosage: 1 PO
     Route: 048
     Dates: start: 20110224, end: 20110515

REACTIONS (4)
  - PRODUCT SUBSTITUTION ISSUE [None]
  - MOUTH ULCERATION [None]
  - DIARRHOEA [None]
  - HEADACHE [None]
